FAERS Safety Report 4837514-6 (Version None)
Quarter: 2005Q4

REPORT INFORMATION
  Report Type: 
  Country: None (occurrence: None)
  Receive Date: 20051128
  Receipt Date: 20051122
  Transmission Date: 20060501
  Serious: Yes (Hospitalization)
  Sender: FDA-Public Use
  Company Number: FR-GLAXOSMITHKLINE-B0401567A

PATIENT
  Age: 60 Year
  Sex: Male

DRUGS (2)
  1. AUGMENTIN [Suspect]
     Indication: SINUSITIS
     Dosage: 1UNIT PER DAY
     Route: 048
     Dates: start: 20051008, end: 20051009
  2. LANZOR [Concomitant]
     Dosage: 1UNIT PER DAY
     Route: 048

REACTIONS (8)
  - ACUTE GENERALISED EXANTHEMATOUS PUSTULOSIS [None]
  - ANGIONEUROTIC OEDEMA [None]
  - ERYTHEMA [None]
  - FACE OEDEMA [None]
  - NEUTROPHIL COUNT INCREASED [None]
  - PURPURA [None]
  - RASH MACULO-PAPULAR [None]
  - RASH PUSTULAR [None]
